FAERS Safety Report 7778240-3 (Version None)
Quarter: 2011Q3

REPORT INFORMATION
  Report Type: 
  Country: None (occurrence: None)
  Receive Date: 20110926
  Receipt Date: 20110912
  Transmission Date: 20111222
  Serious: Yes (Hospitalization, Other)
  Sender: FDA-Public Use
  Company Number: PHHY2011US67676

PATIENT
  Sex: Female
  Weight: 59 kg

DRUGS (8)
  1. GILENYA [Suspect]
     Indication: MULTIPLE SCLEROSIS
     Dosage: 0.5 MG, QD
     Route: 048
     Dates: start: 20110718, end: 20110718
  2. SIMVASTATIN [Concomitant]
     Dosage: 20 MG/DAILY
     Route: 048
  3. EVISTA [Concomitant]
     Dosage: 60 MG/DAILY
  4. PANTOPRAZOLE [Concomitant]
     Dosage: 40 MG/DAILY
  5. BACLOFEN [Concomitant]
     Indication: MUSCLE SPASTICITY
     Dosage: 20 MG/DAILY
     Route: 048
  6. CALCIUM CARBONATE [Concomitant]
     Dosage: UNK UKN, UNK
  7. DETROL LA [Concomitant]
     Dosage: 4 MG, UNK
     Route: 048
  8. LYRICA [Concomitant]
     Dosage: 75 MG, BID
     Route: 048

REACTIONS (4)
  - BRADYCARDIA [None]
  - HYPOTENSION [None]
  - ELECTROCARDIOGRAM ABNORMAL [None]
  - ELECTROCARDIOGRAM T WAVE BIPHASIC [None]
